FAERS Safety Report 9058868 (Version 1)
Quarter: 2013Q1

REPORT INFORMATION
  Report Type: Report from Study
  Country: CA (occurrence: CA)
  Receive Date: 20130211
  Receipt Date: 20130211
  Transmission Date: 20140127
  Serious: Yes (Death, Hospitalization)
  Sender: FDA-Public Use
  Company Number: CA-PFIZER INC-2013049494

PATIENT
  Age: 67 Year
  Sex: Male

DRUGS (12)
  1. IRINOTECAN HCL [Suspect]
     Indication: GASTROINTESTINAL NEOPLASM
     Dosage: 340 MG, 1 DAY
     Route: 042
     Dates: start: 20120119
  2. IRINOTECAN HCL [Suspect]
     Dosage: 340 MG, 1X/DAY
     Dates: start: 20121005
  3. IRINOTECAN HCL [Suspect]
     Dosage: 178 MG/M2, UNK
  4. FLUOROURACIL [Suspect]
     Indication: GASTROINTESTINAL NEOPLASM
     Dosage: 550 MG, TOTAL, ROUTE: IVB
     Route: 042
  5. FLUOROURACIL [Suspect]
     Dosage: 1700 MG/M2, UNK
     Dates: start: 20120119
  6. FLUOROURACIL [Suspect]
     Dosage: 3250 MG, UNK
     Dates: start: 20121005
  7. FLUOROURACIL [Suspect]
     Dosage: 550 MG, BOLUS
     Dates: start: 20121005
  8. LEUCOVORIN [Suspect]
     Indication: GASTROINTESTINAL NEOPLASM
  9. BRIVANIB ALANINATE [Suspect]
     Indication: GASTROINTESTINAL NEOPLASM
     Dosage: 600 MG, 1 DAY
     Route: 048
     Dates: start: 20120119, end: 20121015
  10. AMLODIPINE [Concomitant]
     Dosage: UNK
     Dates: start: 20120423
  11. LOMOTIL [Concomitant]
     Dosage: UNK
     Dates: start: 20120101
  12. SULCRATE [Concomitant]

REACTIONS (4)
  - Bronchopneumonia [Fatal]
  - Troponin increased [Not Recovered/Not Resolved]
  - Dehydration [Not Recovered/Not Resolved]
  - Mucosal inflammation [Not Recovered/Not Resolved]
